FAERS Safety Report 20824447 (Version 1)
Quarter: 2022Q2

REPORT INFORMATION
  Report Type: Spontaneous
  Country: US (occurrence: US)
  Receive Date: 20220513
  Receipt Date: 20220513
  Transmission Date: 20220721
  Serious: No
  Sender: FDA-Public Use
  Company Number: US-ELI_LILLY_AND_COMPANY-US202205004253

PATIENT
  Age: 72 Year
  Sex: Female
  Weight: 86.168 kg

DRUGS (4)
  1. TADALAFIL [Suspect]
     Active Substance: TADALAFIL
     Indication: Product used for unknown indication
     Dosage: UNK UNK, DAILY
     Route: 065
     Dates: start: 20220422
  2. TADALAFIL [Suspect]
     Active Substance: TADALAFIL
     Dosage: UNK UNK, DAILY (HALF TABLET)
     Route: 065
     Dates: start: 20220427
  3. REMODULIN [Suspect]
     Active Substance: TREPROSTINIL
     Indication: Pulmonary arterial hypertension
     Dosage: 14 NG, UNKNOWN (14 NG/KG/MIN)
     Route: 058
     Dates: start: 20220311
  4. REMODULIN [Suspect]
     Active Substance: TREPROSTINIL
     Dosage: .026 ML, UNKNOWN (0.026 ML/MIN)
     Route: 058
     Dates: start: 20220419

REACTIONS (6)
  - Decreased appetite [Unknown]
  - Mobility decreased [Unknown]
  - Diarrhoea [Unknown]
  - Headache [Unknown]
  - Nausea [Unknown]
  - Wrong technique in product usage process [Unknown]

NARRATIVE: CASE EVENT DATE: 20220427
